FAERS Safety Report 10698622 (Version 1)
Quarter: 2014Q4

REPORT INFORMATION
  Report Type: Spontaneous
  Country: US (occurrence: None)
  Receive Date: 20141223
  Receipt Date: 20141223
  Transmission Date: 20150529
  Serious: No
  Sender: FDA-Public Use
  Company Number: 1000070401

PATIENT
  Age: 71 Year
  Sex: Male

DRUGS (4)
  1. EX LAX (SENNOSIDES) [Concomitant]
  2. LINZESS [Suspect]
     Active Substance: LINACLOTIDE
     Indication: IRRITABLE BOWEL SYNDROME
     Route: 048
     Dates: start: 201406, end: 2014
  3. MIRALAX (POLYETHYLENE GLYCOL) [Concomitant]
  4. STOOL SOFTNER (NOS) (STOOL SOFTNER (NOS) ) (STOOL SOFTNER) (NOS) ) [Concomitant]

REACTIONS (4)
  - Diarrhoea [None]
  - Off label use [None]
  - Drug ineffective [None]
  - Abdominal discomfort [None]

NARRATIVE: CASE EVENT DATE: 2014
